FAERS Safety Report 7490457-4 (Version None)
Quarter: 2011Q2

REPORT INFORMATION
  Report Type: 
  Country: None (occurrence: None)
  Receive Date: 20110519
  Receipt Date: 20110506
  Transmission Date: 20111010
  Serious: Yes (Hospitalization)
  Sender: FDA-Public Use
  Company Number: US-BAYER-2011-042607

PATIENT
  Age: 36 Year
  Sex: Female
  Weight: 95 kg

DRUGS (6)
  1. HYDROCODONE BITARTRATE AND ACETAMINOPHEN [Concomitant]
     Indication: PAIN
     Dosage: UNK
     Route: 048
     Dates: start: 20090304
  2. DROSPIRENONE AND ETHINYL ESTRADIOL [Suspect]
     Dosage: UNK
     Dates: start: 20080804, end: 20080828
  3. YASMIN [Suspect]
     Dosage: UNK
     Dates: end: 20080917
  4. YASMIN [Suspect]
     Dosage: UNK
     Dates: start: 20030201, end: 20090201
  5. LEVONORGESTREL [Concomitant]
     Indication: CONTRACEPTION
  6. BELLADONNA AND PHENOBARBITONE [Concomitant]
     Indication: ABDOMINAL PAIN UPPER
     Dosage: UNK
     Dates: start: 20090221

REACTIONS (4)
  - PAIN [None]
  - GALLBLADDER DISORDER [None]
  - CHOLELITHIASIS [None]
  - BILE DUCT STONE [None]
